FAERS Safety Report 8480750-0 (Version None)
Quarter: 2012Q3

REPORT INFORMATION
  Report Type: 
  Country: None (occurrence: None)
  Receive Date: 20120702
  Receipt Date: 20120619
  Transmission Date: 20120928
  Serious: Yes (Other)
  Sender: FDA-Public Use
  Company Number: US-ELI_LILLY_AND_COMPANY-US201206007003

PATIENT
  Age: 90 Year
  Sex: Female

DRUGS (4)
  1. HUMALOG MIX 75/25 [Suspect]
     Dosage: UNK, UNKNOWN
  2. HUMALOG MIX 75/25 [Suspect]
     Dosage: 20 U, EACH MORNING
  3. HUMALOG MIX 75/25 [Suspect]
     Indication: DIABETES MELLITUS
  4. HUMALOG MIX 75/25 [Suspect]
     Dosage: 15 U, QD

REACTIONS (3)
  - BLINDNESS UNILATERAL [None]
  - INJECTION SITE PAIN [None]
  - CATARACT [None]
